FAERS Safety Report 6534481-4 (Version None)
Quarter: 2009Q4

REPORT INFORMATION
  Report Type: 
  Country: None (occurrence: None)
  Receive Date: 20091228
  Receipt Date: 20080827
  Transmission Date: 20100525
  Serious: Yes (Hospitalization)
  Sender: FDA-Public Use
  Company Number: US-001798

PATIENT
  Age: 42 Year
  Sex: Male
  Weight: 95 kg

DRUGS (2)
  1. MULTIHANCE [Suspect]
     Indication: BACK PAIN
     Dosage: 20ML QD INTRAVENOUS (NOT OTHERWISE SPECIFIED)
     Route: 042
     Dates: start: 20080825, end: 20080825
  2. MULTIHANCE [Suspect]
     Indication: NUCLEAR MAGNETIC RESONANCE IMAGING
     Dosage: 20ML QD INTRAVENOUS (NOT OTHERWISE SPECIFIED)
     Route: 042
     Dates: start: 20080825, end: 20080825

REACTIONS (1)
  - CHEST PAIN [None]
